FAERS Safety Report 7590109-6 (Version None)
Quarter: 2011Q3

REPORT INFORMATION
  Report Type: 
  Country: None (occurrence: None)
  Receive Date: 20110705
  Receipt Date: 20110624
  Transmission Date: 20111222
  Serious: Yes (Hospitalization)
  Sender: FDA-Public Use
  Company Number: B0729380A

PATIENT
  Sex: Female

DRUGS (3)
  1. ASPARA K [Concomitant]
     Route: 048
  2. PAXIL [Suspect]
     Indication: EATING DISORDER
     Dosage: 30MG PER DAY
     Route: 048
  3. PAXIL [Suspect]
     Dosage: 20MG PER DAY
     Route: 048

REACTIONS (4)
  - EUPHORIC MOOD [None]
  - SOMNOLENCE [None]
  - HYPERSOMNIA [None]
  - INTENTIONAL DRUG MISUSE [None]
